FAERS Safety Report 9467663 (Version 1)
Quarter: 2013Q3

REPORT INFORMATION
  Report Type: Spontaneous
  Country: US (occurrence: None)
  Receive Date: 20130819
  Receipt Date: 20130819
  Transmission Date: 20140515
  Serious: Yes (Disabling)
  Sender: FDA-Public Use
  Company Number: None

PATIENT
  Age: 73 Year
  Sex: 0
  Weight: 56.7 kg

DRUGS (1)
  1. RECLAST [Suspect]
     Indication: ARTHRITIS

REACTIONS (3)
  - Pain in extremity [None]
  - Musculoskeletal disorder [None]
  - Bone pain [None]
